FAERS Safety Report 21247762 (Version 1)
Quarter: 2022Q3

REPORT INFORMATION
  Report Type: Spontaneous
  Country: US (occurrence: None)
  Receive Date: 20220824
  Receipt Date: 20220824
  Transmission Date: 20221027
  Serious: No
  Sender: FDA-Public Use
  Company Number: US-ARIS GLOBAL-EMM202205-000089

PATIENT
  Age: 17 Year
  Sex: Male
  Weight: 58.967 kg

DRUGS (4)
  1. ENDARI [Suspect]
     Active Substance: GLUTAMINE
     Indication: Sickle cell disease
     Dosage: 10 G
     Route: 048
     Dates: start: 20190625
  2. MONTELUKAST [Concomitant]
     Active Substance: MONTELUKAST SODIUM
     Indication: Asthma
     Dosage: UNKNOWN
     Route: 065
  3. SYMBICORT [Concomitant]
     Active Substance: BUDESONIDE\FORMOTEROL FUMARATE DIHYDRATE
     Indication: Asthma
     Dosage: UNKNOWN (2 PUFF)
  4. ALBUTEROL [Concomitant]
     Active Substance: ALBUTEROL
     Indication: Asthma
     Dosage: UNKNOWN

REACTIONS (3)
  - Dyspnoea [Unknown]
  - Abdominal pain upper [Unknown]
  - Product dose omission issue [Unknown]
